FAERS Safety Report 20669200 (Version 1)
Quarter: 2022Q2

REPORT INFORMATION
  Report Type: Spontaneous
  Country: DE (occurrence: DE)
  Receive Date: 20220404
  Receipt Date: 20220404
  Transmission Date: 20220720
  Serious: Yes (Hospitalization)
  Sender: FDA-Public Use
  Company Number: DE-DCGMA-21192495

PATIENT
  Age: 26 Year
  Sex: Male
  Weight: 85 kg

DRUGS (4)
  1. ZYPADHERA [Suspect]
     Active Substance: OLANZAPINE PAMOATE
     Indication: Schizophrenia
     Dosage: 405 MG, UNKNOWN
     Route: 030
     Dates: start: 20210730, end: 20210730
  2. ZYPADHERA [Suspect]
     Active Substance: OLANZAPINE PAMOATE
     Indication: Schizophrenia
     Dosage: 405 MG, UNKNOWN
     Route: 030
     Dates: start: 20210730, end: 20210730
  3. ZYPADHERA [Suspect]
     Active Substance: OLANZAPINE PAMOATE
     Indication: Schizophrenia
     Dosage: 405 MG, UNKNOWN
     Route: 030
     Dates: start: 20210730, end: 20210730
  4. OLANZAPINE [Concomitant]
     Active Substance: OLANZAPINE
     Indication: Schizophrenia
     Dosage: 10 MG, UNKNOWN
     Route: 030
     Dates: start: 20210727, end: 20210729

REACTIONS (6)
  - Disturbance in attention [Recovered/Resolved]
  - Post procedural complication [Recovered/Resolved]
  - Disorientation [Recovered/Resolved]
  - Confusional state [Recovered/Resolved]
  - Dysarthria [Recovered/Resolved]
  - Agitation [Recovered/Resolved]

NARRATIVE: CASE EVENT DATE: 20210731
